FAERS Safety Report 9992146 (Version 1)
Quarter: 2014Q1

REPORT INFORMATION
  Report Type: Spontaneous
  Country: US (occurrence: US)
  Receive Date: 20140310
  Receipt Date: 20140310
  Transmission Date: 20141002
  Serious: Yes (Other)
  Sender: FDA-Public Use
  Company Number: US-ASTELLAS-2014US001634

PATIENT
  Age: 82 Year
  Sex: Male

DRUGS (1)
  1. XTANDI [Suspect]
     Indication: METASTASES TO PROSTATE
     Dosage: 160 MG, UID/QD
     Route: 048
     Dates: start: 201212, end: 201312

REACTIONS (1)
  - Malignant neoplasm progression [Unknown]
